FAERS Safety Report 4892469-3 (Version None)
Quarter: 2006Q1

REPORT INFORMATION
  Report Type: 
  Country: None (occurrence: None)
  Receive Date: 20060126
  Receipt Date: 20050531
  Transmission Date: 20060701
  Serious: No
  Sender: FDA-Public Use
  Company Number: US-BRISTOL-MYERS SQUIBB COMPANY-12987574

PATIENT
  Age: 1 Year
  Sex: Male
  Weight: 11 kg

DRUGS (3)
  1. CEFZIL [Suspect]
  2. ZYRTEC [Concomitant]
  3. NASONEX [Concomitant]

REACTIONS (4)
  - DIARRHOEA [None]
  - ECZEMA [None]
  - URTICARIA [None]
  - VOMITING [None]
